FAERS Safety Report 6242536-7 (Version None)
Quarter: 2009Q2

REPORT INFORMATION
  Report Type: 
  Country: None (occurrence: None)
  Receive Date: 20090624
  Receipt Date: 20090610
  Transmission Date: 20091009
  Serious: Yes (Hospitalization)
  Sender: FDA-Public Use
  Company Number: BR-ROCHE-637756

PATIENT
  Sex: Male

DRUGS (2)
  1. VESANOID [Suspect]
     Indication: ACUTE MYELOID LEUKAEMIA
     Dosage: ROUTE: ENTERAL
     Route: 050
     Dates: start: 20090610
  2. VESANOID [Suspect]
     Dosage: ROUTE: UNSPECIFIED
     Route: 050
     Dates: end: 20090609

REACTIONS (3)
  - LEUKAEMIA [None]
  - MEDICATION ERROR [None]
  - NO ADVERSE EVENT [None]
